FAERS Safety Report 7550722-9 (Version None)
Quarter: 2011Q2

REPORT INFORMATION
  Report Type: 
  Country: None (occurrence: None)
  Receive Date: 20110609
  Receipt Date: 20110601
  Transmission Date: 20111010
  Serious: Yes (Hospitalization)
  Sender: FDA-Public Use
  Company Number: UTC-006276

PATIENT
  Age: 27 Year
  Sex: Female

DRUGS (2)
  1. REMODULIN [Suspect]
     Indication: PULMONARY ARTERIAL HYPERTENSION
     Dosage: 144 UG/KG (0.1 UG/KG, 1 IN 1 MIN), INTRAVNEOUS
     Route: 042
     Dates: start: 20090224
  2. DIURETICS (DIURETICS) [Concomitant]

REACTIONS (3)
  - HAEMOPTYSIS [None]
  - LOBAR PNEUMONIA [None]
  - NOSOCOMIAL INFECTION [None]
